FAERS Safety Report 15996324 (Version 13)
Quarter: 2019Q4

REPORT INFORMATION
  Report Type: Report from Study
  Country: US (occurrence: US)
  Receive Date: 20190222
  Receipt Date: 20191220
  Transmission Date: 20200122
  Serious: Yes (Death, Hospitalization, Other)
  Sender: FDA-Public Use
  Company Number: US-ACTELION-A-US2019-186554

PATIENT
  Age: 64 Year
  Sex: Female
  Weight: 63.49 kg

DRUGS (18)
  1. VELETRI [Suspect]
     Active Substance: EPOPROSTENOL
     Dosage: 34 NG/KG, PER MIN
     Route: 042
     Dates: start: 20161129
  2. VELETRI [Suspect]
     Active Substance: EPOPROSTENOL
     Dosage: 79 NG/KG, PER MIN
     Route: 042
  3. LETAIRIS [Concomitant]
     Active Substance: AMBRISENTAN
  4. VELETRI [Suspect]
     Active Substance: EPOPROSTENOL
     Dosage: 22 NG/KG, PER MIN
     Route: 042
  5. OXYGEN. [Concomitant]
     Active Substance: OXYGEN
     Dosage: 4 UNK
  6. ZOLOFT [Concomitant]
     Active Substance: SERTRALINE HYDROCHLORIDE
     Dosage: 5 MG, QD
  7. GABAPENTIN. [Concomitant]
     Active Substance: GABAPENTIN
     Dosage: 300 MG, TID
  8. SILDENAFIL CITRATE. [Concomitant]
     Active Substance: SILDENAFIL CITRATE
  9. FLUTICASONE. [Concomitant]
     Active Substance: FLUTICASONE
     Dosage: 2 PUFFS, BID
  10. VELETRI [Suspect]
     Active Substance: EPOPROSTENOL
     Indication: PULMONARY ARTERIAL HYPERTENSION
     Dosage: 28 NG/KG, PER MIN
     Route: 042
  11. LASIX [Suspect]
     Active Substance: FUROSEMIDE
     Indication: FLUID OVERLOAD
     Dosage: UNK
     Route: 042
  12. SPIRONOLACTONE. [Concomitant]
     Active Substance: SPIRONOLACTONE
     Dosage: 25 MG, BID
  13. OXYGEN. [Concomitant]
     Active Substance: OXYGEN
     Dosage: 3 L, PER MIN
  14. POTASSIUM CHLORIDE. [Concomitant]
     Active Substance: POTASSIUM CHLORIDE
     Dosage: 20 MEQ, TID
  15. MAGNESIUM OXIDE. [Concomitant]
     Active Substance: MAGNESIUM OXIDE
     Dosage: 400 MG, TID
  16. AMBRISENTAN [Concomitant]
     Active Substance: AMBRISENTAN
  17. VELETRI [Suspect]
     Active Substance: EPOPROSTENOL
     Dosage: 21.8 NG/KG, PER MIN
     Route: 042
  18. LEVOTHYROXINE. [Concomitant]
     Active Substance: LEVOTHYROXINE
     Dosage: UNK MG, QD

REACTIONS (31)
  - Fall [Unknown]
  - Cardiac flutter [Unknown]
  - Syncope [Unknown]
  - Biopsy lung [Unknown]
  - Overdose [Unknown]
  - Fatigue [Unknown]
  - Hospitalisation [Unknown]
  - Hypophagia [Unknown]
  - Diarrhoea [Unknown]
  - Cardiac arrest [Unknown]
  - Cardioversion [Unknown]
  - Dyspnoea [Recovering/Resolving]
  - Oedema [Unknown]
  - Injury [Unknown]
  - Weight decreased [Unknown]
  - Fluid overload [Unknown]
  - Traumatic intracranial haemorrhage [Unknown]
  - Unevaluable event [Unknown]
  - Productive cough [Recovering/Resolving]
  - Blood pressure fluctuation [Unknown]
  - Pneumonia [Recovering/Resolving]
  - Hypoxia [Unknown]
  - Cardiac dysfunction [Unknown]
  - Pain in jaw [Unknown]
  - Death [Fatal]
  - Head injury [Unknown]
  - Unresponsive to stimuli [Unknown]
  - Oxygen saturation decreased [Recovering/Resolving]
  - Heart rate increased [Unknown]
  - Hypotension [Unknown]
  - Weight increased [Unknown]

NARRATIVE: CASE EVENT DATE: 20190210
